FAERS Safety Report 22229403 (Version 1)
Quarter: 2023Q2

REPORT INFORMATION
  Report Type: Spontaneous
  Country: US (occurrence: US)
  Receive Date: 20230419
  Receipt Date: 20230419
  Transmission Date: 20230722
  Serious: No
  Sender: FDA-Public Use
  Company Number: US-ALLERGAN-2225068US

PATIENT
  Sex: Female
  Weight: 89.357 kg

DRUGS (2)
  1. RESTASIS [Suspect]
     Active Substance: CYCLOSPORINE
     Indication: Dry eye
     Dosage: 4 GTT, BID
     Route: 031
  2. REFRESH RELIEVA PF [Concomitant]
     Active Substance: CARBOXYMETHYLCELLULOSE SODIUM\GLYCERIN
     Indication: Dry eye
     Dosage: UNK

REACTIONS (2)
  - Mitral valve disease [Unknown]
  - Expired product administered [Unknown]

NARRATIVE: CASE EVENT DATE: 20220701
